FAERS Safety Report 4493587-4 (Version None)
Quarter: 2004Q3

REPORT INFORMATION
  Report Type: 
  Country: None (occurrence: None)
  Receive Date: 20040921
  Receipt Date: 20040130
  Transmission Date: 20050211
  Serious: Yes (Death)
  Sender: FDA-Public Use
  Company Number: 163-20785-04020019

PATIENT
  Age: 65 Year
  Sex: Female
  Weight: 52 kg

DRUGS (16)
  1. THALOMID [Suspect]
     Indication: MULTIPLE MYELOMA
     Dosage: 50-400 MG, DAILY, ORAL
     Route: 048
     Dates: start: 20020117, end: 20031212
  2. NORVASC [Concomitant]
  3. ISORDIL [Concomitant]
  4. ZOLOFT [Concomitant]
  5. CLONIDINE [Concomitant]
  6. LABETALOL HCL [Concomitant]
  7. DEMADEX [Concomitant]
  8. SINGULAIR [Concomitant]
  9. MIRALAX [Concomitant]
  10. FORADIL (FORMOTEROL FUMARATE) (INHALANT) [Concomitant]
  11. MULTIVITAMIN (MULTIVITAMINS) [Concomitant]
  12. DUONEB TREATMENT (COMBIVENT) [Concomitant]
  13. PULMICORT NEBULIZER (BUDESONIDE) [Concomitant]
  14. AMBIEN [Concomitant]
  15. XANAX [Concomitant]
  16. DIFLUCAN [Concomitant]

REACTIONS (6)
  - ACUTE MYELOID LEUKAEMIA [None]
  - DEATH [None]
  - DISEASE PROGRESSION [None]
  - DISSEMINATED INTRAVASCULAR COAGULATION [None]
  - PNEUMONIA [None]
  - RENAL FAILURE CHRONIC [None]
